FAERS Safety Report 5878242-8 (Version None)
Quarter: 2008Q3

REPORT INFORMATION
  Report Type: 
  Country: None (occurrence: None)
  Receive Date: 20080911
  Receipt Date: 20080901
  Transmission Date: 20090109
  Serious: Yes (Other)
  Sender: FDA-Public Use
  Company Number: GB-ELI_LILLY_AND_COMPANY-GB200809001516

PATIENT
  Age: 75 Year
  Sex: Female

DRUGS (3)
  1. CYMBALTA [Suspect]
     Indication: DEPRESSION
     Dosage: 30 MG, UNKNOWN
     Route: 048
     Dates: start: 20080806, end: 20080808
  2. DIAZEPAM [Concomitant]
     Indication: ANXIETY
     Dosage: 0.5 MG, UNKNOWN
     Route: 048
     Dates: start: 20060701
  3. MIRTAZAPINE [Concomitant]
     Indication: DEPRESSION
     Dosage: 30 MG, UNKNOWN
     Route: 048
     Dates: start: 20060701, end: 20080725

REACTIONS (3)
  - DYSPHAGIA [None]
  - HEADACHE [None]
  - SEDATION [None]
